FAERS Safety Report 10025605 (Version 1)
Quarter: 2014Q1

REPORT INFORMATION
  Report Type: Spontaneous
  Country: US (occurrence: None)
  Receive Date: 20140319
  Receipt Date: 20140319
  Transmission Date: 20141002
  Serious: Yes (Other)
  Sender: FDA-Public Use
  Company Number: None

PATIENT
  Age: 41 Year
  Sex: Female

DRUGS (20)
  1. TECFIDERA [Suspect]
     Indication: MULTIPLE SCLEROSIS
     Route: 048
  2. LOVENOX [Concomitant]
  3. DETROL LA [Concomitant]
  4. DEMEROL [Concomitant]
  5. HUMULIN R [Concomitant]
  6. WELLBUTRIN [Concomitant]
  7. WARFARIN SODIUM [Concomitant]
  8. ZOLOFT [Concomitant]
  9. ALBUTEROL [Concomitant]
  10. GABAPENTIN [Concomitant]
  11. DOCUSATE SODIUM [Concomitant]
  12. REQUIP XL [Concomitant]
  13. RANITIDINE [Concomitant]
  14. KLONOPIN [Concomitant]
  15. TYLENOL [Concomitant]
  16. VESICARE [Concomitant]
  17. PRILOSEC [Concomitant]
  18. BACLOFEN [Concomitant]
  19. PRAMIPEXOLE [Concomitant]
  20. LEVOTHYROXINE [Concomitant]

REACTIONS (2)
  - Asthenia [None]
  - Condition aggravated [None]
